FAERS Safety Report 23549735 (Version 1)
Quarter: 2024Q1

REPORT INFORMATION
  Report Type: Spontaneous
  Country: US (occurrence: None)
  Receive Date: 20240220
  Receipt Date: 20240220
  Transmission Date: 20240410
  Serious: No
  Sender: FDA-Public Use
  Company Number: None

PATIENT
  Age: 59 Year
  Sex: Female

DRUGS (1)
  1. VERZENIO [Suspect]
     Active Substance: ABEMACICLIB
     Indication: Breast cancer female
     Dosage: FREQUENCY : TWICE A DAY;?
     Route: 048
     Dates: start: 202402

REACTIONS (5)
  - Neuropathy peripheral [None]
  - Diarrhoea [None]
  - Paraesthesia [None]
  - Hypoaesthesia [None]
  - Hypoaesthesia [None]

NARRATIVE: CASE EVENT DATE: 20240201
